FAERS Safety Report 15685774 (Version 3)
Quarter: 2018Q4

REPORT INFORMATION
  Report Type: Spontaneous
  Country: JP (occurrence: JP)
  Receive Date: 20181204
  Receipt Date: 20181227
  Transmission Date: 20190205
  Serious: Yes (Hospitalization, Other)
  Sender: FDA-Public Use
  Company Number: JP-SANIK-2018SA326396AA

PATIENT
  Age: 78 Year
  Sex: Male

DRUGS (2)
  1. CLOPIDOGREL TABLETS 75MG [SANIK] [Suspect]
     Active Substance: CLOPIDOGREL BISULFATE
     Indication: CEREBRAL INFARCTION
     Route: 048
  2. CILOSTAZOL. [Suspect]
     Active Substance: CILOSTAZOL
     Indication: CEREBRAL INFARCTION
     Route: 048

REACTIONS (4)
  - Cholecystitis [Recovering/Resolving]
  - Nausea [Recovering/Resolving]
  - Abdominal pain upper [Recovering/Resolving]
  - Haemobilia [Recovering/Resolving]
